FAERS Safety Report 6290841-0 (Version None)
Quarter: 2009Q3

REPORT INFORMATION
  Report Type: 
  Country: None (occurrence: None)
  Receive Date: 20090729
  Receipt Date: 20090729
  Transmission Date: 20100115
  Serious: Yes (Hospitalization)
  Sender: FDA-Public Use
  Company Number: None

PATIENT
  Sex: Female
  Weight: 68.9 kg

DRUGS (2)
  1. DOXORUBICIN (ADRIAMYCIN) 60MG/M2 [Suspect]
     Indication: BREAST CANCER
     Dosage: 60MG/M2, EVERY 2 WEEKS, IV
     Route: 042
     Dates: start: 20090724
  2. CYTOXAN [Suspect]
     Indication: BREAST CANCER
     Dosage: 600MG/M2, EVERY 2 WEEKS, IV
     Route: 042
     Dates: start: 20090724

REACTIONS (3)
  - BLOOD SODIUM DECREASED [None]
  - DISORIENTATION [None]
  - FALL [None]
